FAERS Safety Report 21082083 (Version 1)
Quarter: 2022Q3

REPORT INFORMATION
  Report Type: Spontaneous
  Country: US (occurrence: None)
  Receive Date: 20220714
  Receipt Date: 20220714
  Transmission Date: 20221026
  Serious: Yes (Other)
  Sender: FDA-Public Use
  Company Number: None

PATIENT
  Age: 33 Year
  Sex: Male
  Weight: 70 kg

DRUGS (1)
  1. HARVONI [Suspect]
     Active Substance: LEDIPASVIR\SOFOSBUVIR
     Indication: Hepatitis C
     Dosage: OTHER QUANTITY : 90/400 MG;?FREQUENCY : DAILY;?
     Route: 048

REACTIONS (2)
  - Drug ineffective [None]
  - Hepatitis C RNA [None]

NARRATIVE: CASE EVENT DATE: 20220111
